FAERS Safety Report 19819324 (Version 1)
Quarter: 2021Q3

REPORT INFORMATION
  Report Type: Spontaneous
  Country: US (occurrence: US)
  Receive Date: 20210913
  Receipt Date: 20210913
  Transmission Date: 20211014
  Serious: Yes (Hospitalization)
  Sender: FDA-Public Use
  Company Number: US-STRIDES ARCOLAB LIMITED-2021SP026406

PATIENT
  Age: 58 Year
  Sex: Male

DRUGS (7)
  1. PREDNISOLONE. [Suspect]
     Active Substance: PREDNISOLONE
     Dosage: UNK, TAPER WAS CONTINUED
     Route: 048
     Dates: start: 20181011
  2. BEVACIZUMAB. [Suspect]
     Active Substance: BEVACIZUMAB
     Indication: MACULOPATHY
     Dosage: UNK, GIVEN IN RIGHT EYE
     Dates: start: 20181011
  3. PREDNISOLONE. [Suspect]
     Active Substance: PREDNISOLONE
     Dosage: 30 MILLIGRAM DAILY
     Route: 048
     Dates: start: 2018
  4. TRAMETINIB [Concomitant]
     Active Substance: TRAMETINIB
     Indication: MALIGNANT MELANOMA
     Dosage: UNK
     Route: 065
     Dates: start: 20180907
  5. PREDNISOLONE. [Suspect]
     Active Substance: PREDNISOLONE
     Indication: MACULOPATHY
     Dosage: 60 MILLIGRAM DAILY (A WEEKLY 10 MG TAPER)
     Route: 048
     Dates: start: 201809
  6. DABRAFENIB [Concomitant]
     Active Substance: DABRAFENIB
     Indication: MALIGNANT MELANOMA
     Dosage: UNK
     Route: 065
     Dates: start: 20180907
  7. TRIAMCINOLONE [Suspect]
     Active Substance: TRIAMCINOLONE
     Indication: MACULOPATHY
     Dosage: UNK GIVEN IN RIGHT EYE
     Dates: start: 20181011

REACTIONS (1)
  - Drug ineffective [Unknown]
